FAERS Safety Report 7602783-6 (Version None)
Quarter: 2011Q3

REPORT INFORMATION
  Report Type: 
  Country: None (occurrence: None)
  Receive Date: 20110712
  Receipt Date: 20110629
  Transmission Date: 20111222
  Serious: Yes (Other)
  Sender: FDA-Public Use
  Company Number: US-VIROPHARMA INCORPORATED-20110629CINRY2087

PATIENT
  Sex: Female

DRUGS (3)
  1. LORTAB [Concomitant]
     Indication: HEREDITARY ANGIOEDEMA
  2. CINRYZE [Suspect]
     Indication: HEREDITARY ANGIOEDEMA
     Dates: start: 20101001
  3. PHENERGAN HCL [Concomitant]
     Indication: HEREDITARY ANGIOEDEMA

REACTIONS (1)
  - CONVULSION [None]
